FAERS Safety Report 6243912-9 (Version None)
Quarter: 2009Q2

REPORT INFORMATION
  Report Type: 
  Country: None (occurrence: None)
  Receive Date: 20090624
  Receipt Date: 20090615
  Transmission Date: 20091009
  Serious: Yes (Hospitalization, Other)
  Sender: FDA-Public Use
  Company Number: US-AMGEN-QUU351831

PATIENT
  Sex: Female

DRUGS (1)
  1. ENBREL [Suspect]
     Indication: RHEUMATOID ARTHRITIS
     Route: 058
     Dates: start: 20060101

REACTIONS (6)
  - ARTHRALGIA [None]
  - BEDRIDDEN [None]
  - BREAST CANCER [None]
  - MUSCULOSKELETAL PAIN [None]
  - NECK PAIN [None]
  - PAIN [None]
